FAERS Safety Report 20332150 (Version 1)
Quarter: 2022Q1

REPORT INFORMATION
  Report Type: Spontaneous
  Country: US (occurrence: None)
  Receive Date: 20220113
  Receipt Date: 20220113
  Transmission Date: 20220423
  Serious: No
  Sender: FDA-Public Use
  Company Number: None

PATIENT
  Sex: Female

DRUGS (1)
  1. MAYZENT [Suspect]
     Active Substance: SIPONIMOD
     Indication: Multiple sclerosis
     Dosage: 2MG ONCE DAILY BY MOUTH?
     Route: 048
     Dates: start: 202007

REACTIONS (3)
  - Muscle spasms [None]
  - Fall [None]
  - Urinary incontinence [None]
